FAERS Safety Report 11639159 (Version 2)
Quarter: 2015Q4

REPORT INFORMATION
  Report Type: Spontaneous
  Country: US (occurrence: US)
  Receive Date: 20151019
  Receipt Date: 20151019
  Transmission Date: 20160304
  Serious: Yes (Death, Other)
  Sender: FDA-Public Use
  Company Number: US-AUROBINDO-AUR-APL-2014-05962

PATIENT

DRUGS (2)
  1. MIRTAZAPINE TABLETS [Suspect]
     Active Substance: MIRTAZAPINE
     Indication: HYPOTENSION
     Dosage: UNK UNK,UNK,
     Route: 065
  2. SINEMET [Concomitant]
     Active Substance: CARBIDOPA\LEVODOPA
     Indication: PARKINSON^S DISEASE
     Dosage: UNK UNK,UNK,,1/2 TAB (25-100) TID
     Route: 065

REACTIONS (3)
  - Off label use [Unknown]
  - Blood pressure increased [Unknown]
  - Hypotension [Unknown]
